FAERS Safety Report 10589795 (Version 1)
Quarter: 2014Q4

REPORT INFORMATION
  Report Type: Spontaneous
  Country: US (occurrence: None)
  Receive Date: 20141117
  Receipt Date: 20141117
  Transmission Date: 20150529
  Serious: Yes (Hospitalization)
  Sender: FDA-Public Use
  Company Number: None

PATIENT
  Age: 24 Year
  Sex: Female
  Weight: 104.33 kg

DRUGS (1)
  1. NEXPLANON [Suspect]
     Active Substance: ETONOGESTREL
     Indication: CONTRACEPTION

REACTIONS (9)
  - Suicidal ideation [None]
  - Fatigue [None]
  - Drug abuse [None]
  - Nausea [None]
  - Migraine [None]
  - Anxiety [None]
  - Weight increased [None]
  - Affective disorder [None]
  - Malaise [None]
